FAERS Safety Report 15670683 (Version 3)
Quarter: 2018Q4

REPORT INFORMATION
  Report Type: Report from Study
  Country: PE (occurrence: PE)
  Receive Date: 20181129
  Receipt Date: 20181220
  Transmission Date: 20190205
  Serious: Yes (Other)
  Sender: FDA-Public Use
  Company Number: PE-SA-2018SA091470

PATIENT
  Age: 23 Year
  Sex: Male

DRUGS (2)
  1. ISONIAZID. [Concomitant]
     Active Substance: ISONIAZID
     Indication: TUBERCULOSIS
     Dosage: UNK UNK,TID
     Route: 048
     Dates: start: 20171126, end: 20171212
  2. LEMTRADA [Suspect]
     Active Substance: ALEMTUZUMAB
     Indication: MULTIPLE SCLEROSIS
     Dosage: 12 MG,QD
     Route: 041
     Dates: start: 20180123, end: 20180127

REACTIONS (39)
  - Red blood cells urine positive [Not Recovered/Not Resolved]
  - Protein urine present [Not Recovered/Not Resolved]
  - Haemoglobin decreased [Not Recovered/Not Resolved]
  - Blood glucose increased [Recovered/Resolved]
  - Neutrophil percentage increased [Recovered/Resolved]
  - Crystal urine present [Not Recovered/Not Resolved]
  - Pyrexia [Recovered/Resolved]
  - Leukopenia [Unknown]
  - Haematocrit decreased [Not Recovered/Not Resolved]
  - Blood creatinine decreased [Not Recovered/Not Resolved]
  - Blood bilirubin unconjugated decreased [Not Recovered/Not Resolved]
  - Bacterial test positive [Not Recovered/Not Resolved]
  - Crystal urine present [Not Recovered/Not Resolved]
  - Leukocyturia [Unknown]
  - Chills [Recovered/Resolved]
  - C-reactive protein increased [Not Recovered/Not Resolved]
  - Monocyte percentage increased [Not Recovered/Not Resolved]
  - Diarrhoea [Recovered/Resolved]
  - Headache [Recovered/Resolved]
  - Monocyte count increased [Recovered/Resolved]
  - Specific gravity urine abnormal [Not Recovered/Not Resolved]
  - Lymphocyte count decreased [Not Recovered/Not Resolved]
  - Urine leukocyte esterase positive [Recovered/Resolved]
  - Urinary sediment present [Not Recovered/Not Resolved]
  - Loss of consciousness [Recovered/Resolved]
  - White blood cells urine positive [Unknown]
  - Blood alkaline phosphatase increased [Not Recovered/Not Resolved]
  - Protein total decreased [Not Recovered/Not Resolved]
  - Lymphocyte percentage decreased [Not Recovered/Not Resolved]
  - Cough [Recovered/Resolved]
  - Haematuria [Not Recovered/Not Resolved]
  - Headache [Recovered/Resolved]
  - Glucose urine present [Not Recovered/Not Resolved]
  - Crystal urine present [Unknown]
  - Influenza [Recovered/Resolved]
  - Pyrexia [Recovered/Resolved]
  - Proteinuria [Not Recovered/Not Resolved]
  - Haemoglobin urine present [Unknown]
  - Fall [Recovered/Resolved]

NARRATIVE: CASE EVENT DATE: 201802
